FAERS Safety Report 17242965 (Version 2)
Quarter: 2020Q1

REPORT INFORMATION
  Report Type: Report from Study
  Country: IE (occurrence: IE)
  Receive Date: 20200107
  Receipt Date: 20200131
  Transmission Date: 20200409
  Serious: Yes (Hospitalization)
  Sender: FDA-Public Use
  Company Number: IE-EMD SERONO-9138987

PATIENT
  Age: 47 Year
  Sex: Male

DRUGS (2)
  1. MAVENCLAD [Suspect]
     Active Substance: CLADRIBINE
     Indication: RELAPSING-REMITTING MULTIPLE SCLEROSIS
     Dosage: FIRST WEEK THERAPY: TWO TABLETS (EACH OF 10 MG) ON DAYS 1 TO 4 AND ONE TABLET ON DAY 5.
     Route: 048
     Dates: start: 20190708
  2. MAVENCLAD [Suspect]
     Active Substance: CLADRIBINE
     Dosage: SECOND WEEK THERAPY: TWO TABLETS (EACH OF 10 MG) ON DAYS 1 TO 4 AND ONE TABLET ON DAY 5.
     Route: 048
     Dates: start: 20190805

REACTIONS (2)
  - Urosepsis [Recovering/Resolving]
  - Fall [Unknown]

NARRATIVE: CASE EVENT DATE: 20191227
